FAERS Safety Report 7028299-6 (Version None)
Quarter: 2010Q4

REPORT INFORMATION
  Report Type: 
  Country: None (occurrence: None)
  Receive Date: 20101005
  Receipt Date: 20100923
  Transmission Date: 20110411
  Serious: Yes (Hospitalization)
  Sender: FDA-Public Use
  Company Number: CA-ROCHE-711017

PATIENT
  Sex: Female
  Weight: 44 kg

DRUGS (20)
  1. TRASTUZUMAB [Suspect]
     Dosage: LOADING DOSE
     Route: 042
     Dates: start: 20100609
  2. TRASTUZUMAB [Suspect]
     Dosage: LAST DOSE:22 JULY 2010. DOSAGE FORM:INFUSION
     Route: 042
     Dates: start: 20100609
  3. PERTUZUMAB [Suspect]
     Dosage: LOADING DOSE.
     Route: 042
     Dates: start: 20100609
  4. PERTUZUMAB [Suspect]
     Dosage: LAST DOSE:22 JULY 2010. DOSAGE FORM:INFUSION
     Route: 042
     Dates: start: 20100609
  5. EPIRUBICIN [Suspect]
     Dosage: LAST DOSE:22 JULY 2010.DOSAGE FORM:INFUSION
     Route: 042
     Dates: start: 20100609
  6. FLUOROURACIL [Suspect]
     Dosage: LAST DOSE:22 JULY 2010
     Route: 042
     Dates: start: 20100609
  7. FLUOROURACIL [Suspect]
     Dosage: DOSE REDUCTION AT CYCLE 2
     Route: 042
     Dates: start: 20100630
  8. FLUOROURACIL [Suspect]
     Dosage: CYCLE 3
     Route: 042
     Dates: start: 20100722
  9. CYCLOPHOSPHAMIDE [Suspect]
     Dosage: LAST DOSE:22 JULY 2010
     Route: 042
     Dates: start: 20100609
  10. CYCLOPHOSPHAMIDE [Suspect]
     Dosage: DOSE REDUCTION AT CYCLE 2
     Route: 042
     Dates: start: 20100630
  11. CYCLOPHOSPHAMIDE [Suspect]
     Route: 042
     Dates: start: 20100722
  12. OMEGA [Concomitant]
     Dosage: DRUG: OMEGA 3
     Route: 048
     Dates: start: 20070101
  13. VITAMIN B COMPLEX CAP [Concomitant]
     Route: 048
     Dates: start: 20070101
  14. REACTINE [Concomitant]
     Dates: start: 19950101
  15. ADVIL LIQUI-GELS [Concomitant]
     Dosage: DRUG: ADVIL SINUS
     Dates: start: 19950101
  16. NASONEX [Concomitant]
     Dosage: TOTAL DAILY DOSE: 1 PUFF PRN
     Dates: start: 19950101
  17. ONDANSETRON [Concomitant]
     Dates: start: 20100609, end: 20100722
  18. DEXAMETHASONE [Concomitant]
     Dosage: DAY 1 EACH CYCLE
     Dates: start: 20100608
  19. DEXAMETHASONE [Concomitant]
     Dates: start: 20100609, end: 20100609
  20. MAXERAN [Concomitant]
     Dates: start: 20100609, end: 20100609

REACTIONS (1)
  - CLOSTRIDIAL INFECTION [None]
